FAERS Safety Report 7406549-1 (Version None)
Quarter: 2011Q2

REPORT INFORMATION
  Report Type: 
  Country: None (occurrence: None)
  Receive Date: 20110411
  Receipt Date: 20110405
  Transmission Date: 20111010
  Serious: Yes (Other)
  Sender: FDA-Public Use
  Company Number: US-US-EMD SERONO, INC.-7047481

PATIENT
  Sex: Female

DRUGS (2)
  1. REBIF [Suspect]
     Indication: PRODUCT USED FOR UNKNOWN INDICATION
     Route: 058
     Dates: start: 20110304, end: 20110101
  2. REBIF [Suspect]
     Route: 058
     Dates: start: 20110101

REACTIONS (3)
  - CONTUSION [None]
  - HAEMANGIOMA [None]
  - HEADACHE [None]
